FAERS Safety Report 13390234 (Version 1)
Quarter: 2017Q1

REPORT INFORMATION
  Report Type: Spontaneous
  Country: PL (occurrence: PL)
  Receive Date: 20170331
  Receipt Date: 20170331
  Transmission Date: 20170429
  Serious: Yes (Life-Threatening, Hospitalization, Other)
  Sender: FDA-Public Use
  Company Number: PL-ASTRAZENECA-2017SE33532

PATIENT
  Sex: Female

DRUGS (11)
  1. ACATAR ACTITABS [Interacting]
     Active Substance: OXYMETAZOLINE HYDROCHLORIDE
     Route: 045
  2. QUETIAPINE. [Interacting]
     Active Substance: QUETIAPINE
     Indication: SLEEP DISORDER
     Route: 048
  3. CLARITHROMYCIN. [Interacting]
     Active Substance: CLARITHROMYCIN
     Indication: INFECTION
     Dosage: 2X500 MG NON AZ PRODUCT
     Route: 065
  4. TRAMADOL+PARACETAMOL [Concomitant]
     Active Substance: ACETAMINOPHEN\TRAMADOL
  5. POTASSIUM [Concomitant]
     Active Substance: POTASSIUM
  6. PERAZINE [Concomitant]
     Active Substance: PERAZINE
  7. CHLORPROTHIXENE [Concomitant]
     Active Substance: CHLORPROTHIXENE
  8. NORMATENS (CLOPAMIDE\DIHYDROERGOCRISTINE\RESERPINE) [Interacting]
     Active Substance: CLOPAMIDE\DIHYDROERGOCRISTINE\RESERPINE
     Route: 065
  9. QUETIAPINE. [Suspect]
     Active Substance: QUETIAPINE
     Indication: ABNORMAL BEHAVIOUR
     Route: 048
  10. HYDROXYZINE [Interacting]
     Active Substance: HYDROXYZINE HYDROCHLORIDE
     Route: 065
  11. XYLOMETAZOLINE [Concomitant]
     Active Substance: XYLOMETAZOLINE
     Route: 045

REACTIONS (4)
  - Drug interaction [Unknown]
  - Infection [None]
  - Nasal congestion [None]
  - Neuroleptic malignant syndrome [Unknown]
